FAERS Safety Report 10210907 (Version 1)
Quarter: 2014Q2

REPORT INFORMATION
  Report Type: Spontaneous
  Country: US (occurrence: None)
  Receive Date: 20140530
  Receipt Date: 20140530
  Transmission Date: 20141212
  Serious: No
  Sender: FDA-Public Use
  Company Number: None

PATIENT
  Age: 74 Year
  Sex: Female
  Weight: 62.14 kg

DRUGS (5)
  1. LEVOFLOXACIN [Suspect]
     Indication: PNEUMONIA
     Dosage: 750 MG 5 PILLS ONE PER DAY BY MOUTH
     Route: 048
     Dates: start: 20140418, end: 20140422
  2. LORAZEPAM [Concomitant]
  3. BABY ASPIRIN [Concomitant]
  4. VITAMIN D3 [Concomitant]
  5. FOLIC ACID [Concomitant]

REACTIONS (3)
  - Abasia [None]
  - Tendon disorder [None]
  - Musculoskeletal disorder [None]
